FAERS Safety Report 8837849 (Version 1)
Quarter: 2012Q4

REPORT INFORMATION
  Report Type: Report from Study
  Country: CA (occurrence: CA)
  Receive Date: 20121012
  Receipt Date: 20121012
  Transmission Date: 20130627
  Serious: Yes (Other)
  Sender: FDA-Public Use
  Company Number: CA-ABBOTT-12P-028-0991003-00

PATIENT
  Age: 48 None
  Sex: Female
  Weight: 65.8 kg

DRUGS (4)
  1. HUMIRA [Suspect]
     Indication: CROHN^S DISEASE
     Route: 058
     Dates: start: 20120506, end: 20120916
  2. LOSEC [Concomitant]
     Indication: PRODUCT USED FOR UNKNOWN INDICATION
     Dates: start: 2007, end: 20121005
  3. IMURAN [Concomitant]
     Indication: PRODUCT USED FOR UNKNOWN INDICATION
     Dates: start: 20120405, end: 20121005
  4. PREDNISONE [Concomitant]
     Dosage: 10-20mg/day
     Dates: start: 20120724, end: 20121005

REACTIONS (7)
  - Anaemia [Recovering/Resolving]
  - Drug ineffective [Not Recovered/Not Resolved]
  - Crohn^s disease [Not Recovered/Not Resolved]
  - Haemorrhage [Unknown]
  - Pharyngitis [Not Recovered/Not Resolved]
  - Diarrhoea [Unknown]
  - Abdominal tenderness [Unknown]
